FAERS Safety Report 7138314-7 (Version None)
Quarter: 2010Q4

REPORT INFORMATION
  Report Type: 
  Country: None (occurrence: None)
  Receive Date: 20101206
  Receipt Date: 20101130
  Transmission Date: 20110411
  Serious: Yes (Death)
  Sender: FDA-Public Use
  Company Number: CN-ROCHE-744911

PATIENT
  Age: 62 Year
  Sex: Female
  Weight: 55 kg

DRUGS (3)
  1. HERCEPTIN [Suspect]
     Indication: BREAST CANCER METASTATIC
     Dosage: THIS IS THE LOADING DOSE.
     Route: 041
     Dates: start: 20091124, end: 20091124
  2. HERCEPTIN [Suspect]
     Route: 041
     Dates: start: 20091201, end: 20100601
  3. PACLITAXEL [Concomitant]
     Indication: BREAST CANCER METASTATIC
     Route: 041
     Dates: start: 20091124, end: 20100201

REACTIONS (2)
  - ASTHENIA [None]
  - METASTASES TO CENTRAL NERVOUS SYSTEM [None]
